FAERS Safety Report 4783018-9 (Version None)
Quarter: 2005Q3

REPORT INFORMATION
  Report Type: 
  Country: None (occurrence: None)
  Receive Date: 20050914
  Receipt Date: 20040915
  Transmission Date: 20060218
  Serious: Yes (Death)
  Sender: FDA-Public Use
  Company Number: 163-20785-04070068

PATIENT
  Age: 56 Year
  Sex: Female

DRUGS (3)
  1. THALOMID [Suspect]
     Indication: BREAST CANCER FEMALE
     Dosage: 100 MG, DAILY, ORAL
     Route: 048
     Dates: start: 20040308, end: 20040101
  2. THALOMID [Suspect]
     Indication: METASTASES TO LIVER
     Dosage: 100 MG, DAILY, ORAL
     Route: 048
     Dates: start: 20040308, end: 20040101
  3. TAMOXIFEN CITRATE [Concomitant]

REACTIONS (2)
  - DEATH [None]
  - DISEASE PROGRESSION [None]
